FAERS Safety Report 5546062-X (Version None)
Quarter: 2007Q4

REPORT INFORMATION
  Report Type: 
  Country: None (occurrence: None)
  Receive Date: 20071211
  Receipt Date: 20070913
  Transmission Date: 20080405
  Serious: Yes (Hospitalization)
  Sender: FDA-Public Use
  Company Number: US-BRISTOL-MYERS SQUIBB COMPANY-13907878

PATIENT
  Age: 64 Year
  Sex: Female
  Weight: 91 kg

DRUGS (6)
  1. EMSAM [Suspect]
     Indication: DEPRESSION
     Route: 062
  2. ZOCOR [Concomitant]
     Route: 048
  3. ATIVAN [Concomitant]
     Route: 048
  4. NEXIUM [Concomitant]
     Route: 048
  5. LOPRESSOR [Concomitant]
     Route: 048
  6. DITROPAN [Concomitant]
     Route: 048

REACTIONS (5)
  - ANOREXIA [None]
  - DEPRESSION [None]
  - DRUG INEFFECTIVE [None]
  - DRY MOUTH [None]
  - NAUSEA [None]
